FAERS Safety Report 14582056 (Version 2)
Quarter: 2018Q1

REPORT INFORMATION
  Report Type: Spontaneous
  Country: US (occurrence: US)
  Receive Date: 20180228
  Receipt Date: 20180313
  Transmission Date: 20180509
  Serious: Yes (Hospitalization)
  Sender: FDA-Public Use
  Company Number: US-MIKART, INC.-2042717

PATIENT
  Age: 59 Year
  Sex: Female

DRUGS (5)
  1. HYZAAR [Concomitant]
     Active Substance: HYDROCHLOROTHIAZIDE\LOSARTAN POTASSIUM
  2. ZOHYDRO [Concomitant]
     Active Substance: HYDROCODONE BITARTRATE
  3. VYTORIN [Concomitant]
     Active Substance: EZETIMIBE\SIMVASTATIN
  4. HYDROCODONE BITARTRATE AND ACETAMINOPHEN [Suspect]
     Active Substance: ACETAMINOPHEN\HYDROCODONE BITARTRATE
     Indication: PRODUCT USED FOR UNKNOWN INDICATION
     Route: 048
     Dates: start: 2011
  5. SAIZEN [Concomitant]
     Active Substance: SOMATROPIN

REACTIONS (7)
  - Intervertebral disc protrusion [Unknown]
  - Disorientation [Unknown]
  - Spinal disorder [Unknown]
  - Scar [Unknown]
  - Dizziness [Unknown]
  - Nephrolithiasis [Unknown]
  - Intervertebral disc operation [Unknown]

NARRATIVE: CASE EVENT DATE: 2015
